FAERS Safety Report 21527832 (Version 2)
Quarter: 2022Q4

REPORT INFORMATION
  Report Type: Spontaneous
  Country: CA (occurrence: CA)
  Receive Date: 20221031
  Receipt Date: 20221222
  Transmission Date: 20230112
  Serious: Yes (Hospitalization, Other)
  Sender: FDA-Public Use
  Company Number: CA-ANIPHARMA-2022-CA-001479

PATIENT
  Age: 49 Year
  Sex: Female
  Weight: 87 kg

DRUGS (18)
  1. CANDESARTAN CILEXETIL [Suspect]
     Active Substance: CANDESARTAN CILEXETIL
     Indication: Product used for unknown indication
     Dosage: 4 MG BID
     Route: 065
  2. VENTOLIN [Suspect]
     Active Substance: ALBUTEROL SULFATE
     Dosage: 100 UG UNK / 100 UG UNK
     Route: 065
  3. CLARITIN [Concomitant]
     Active Substance: LORATADINE
     Dosage: 10 MG
     Route: 065
  4. PERCOCET [Concomitant]
     Active Substance: ACETAMINOPHEN\OXYCODONE HYDROCHLORIDE
     Dosage: 3 DF DAILY
     Route: 048
  5. PREDNISONE [Concomitant]
     Active Substance: PREDNISONE
     Dosage: 50 MG
     Route: 065
  6. PREMARIN WITH METHYLTESTOSTERONE [Concomitant]
     Active Substance: ESTROGENS, CONJUGATED\METHYLTESTOSTERONE
     Dosage: 1 DF QD
     Route: 048
  7. REACTINE [Concomitant]
     Dosage: 20 MG BID
     Route: 065
  8. ALBUTEROL [Concomitant]
     Active Substance: ALBUTEROL
     Dosage: 1 DF TID
     Route: 055
  9. SINGULAIR [Concomitant]
     Active Substance: MONTELUKAST SODIUM
     Dosage: 10 MG DAILY
     Route: 065
  10. BECLOMETHASONE [Concomitant]
     Active Substance: BECLOMETHASONE
     Dosage: 1 DF BID
     Route: 055
  11. BUDESONIDE\FORMOTEROL FUMARATE DIHYDRATE [Suspect]
     Active Substance: BUDESONIDE\FORMOTEROL FUMARATE DIHYDRATE
     Dosage: 1 DF TWO TIMES A DAY/ 200 UG UNKNOWN
     Route: 055
     Dates: start: 201805
  12. CAMPHOR\DIPHENHYDRAMINE\ZINC OXIDE [Suspect]
     Active Substance: CAMPHOR\DIPHENHYDRAMINE\ZINC OXIDE
     Dosage: 1 DF BID
     Route: 048
  13. BENADRYL [Suspect]
     Active Substance: DIPHENHYDRAMINE HYDROCHLORIDE
     Dosage: 1 DF BID / 1 DF BID / 1 DF BID
     Route: 048
     Dates: start: 2012
  14. ACETAMINOPHEN\OXYCODONE HYDROCHLORIDE [Suspect]
     Active Substance: ACETAMINOPHEN\OXYCODONE HYDROCHLORIDE
     Dosage: 3 DF BID / UNK
     Route: 048
     Dates: start: 2008
  15. CETIRIZINE HYDROCHLORIDE [Suspect]
     Active Substance: CETIRIZINE HYDROCHLORIDE
     Route: 065
     Dates: start: 2011
  16. CHLORASEPTIC SORE THROAT [Suspect]
     Active Substance: PHENOL
     Dosage: SORE THROAT SPRAY
     Route: 065
  17. CYCLOSPORINE [Suspect]
     Active Substance: CYCLOSPORINE
     Dosage: 50 MG QD / 300 MG BID / 150 MG UNK
     Route: 048
     Dates: start: 201201
  18. OMALIZUMAB [Suspect]
     Active Substance: OMALIZUMAB
     Dosage: 150 MG, EVERY MONTH / 150 MG UNK / 300 MG UNK / 300 MG UNK / 300 MG UNK / 300 MG UNK / 300 MG UNK /
     Route: 058
     Dates: start: 20200430

REACTIONS (63)
  - Aneurysm [Unknown]
  - Blindness [Unknown]
  - Blood pressure increased [Not Recovered/Not Resolved]
  - Bone pain [Unknown]
  - Chills [Recovering/Resolving]
  - Chronic spontaneous urticaria [Unknown]
  - Condition aggravated [Unknown]
  - Cough [Unknown]
  - Diarrhoea [Recovering/Resolving]
  - Drug hypersensitivity [Unknown]
  - Erythema [Unknown]
  - Angioedema [Unknown]
  - Eye swelling [Unknown]
  - Fatigue [Unknown]
  - Feeling abnormal [Unknown]
  - Headache [Unknown]
  - Hypertension [Unknown]
  - Impaired healing [Not Recovered/Not Resolved]
  - Inflammation [Unknown]
  - Injection site scab [Not Recovered/Not Resolved]
  - Intracranial pressure increased [Unknown]
  - Lung disorder [Recovered/Resolved]
  - Arthralgia [Unknown]
  - Malaise [Unknown]
  - Migraine [Unknown]
  - Migraine without aura [Unknown]
  - Musculoskeletal discomfort [Unknown]
  - Myalgia [Unknown]
  - Nausea [Unknown]
  - Oxygen saturation decreased [Unknown]
  - Pain [Unknown]
  - Pain in extremity [Unknown]
  - Peripheral swelling [Unknown]
  - Arthritis [Unknown]
  - Pruritus [Unknown]
  - Pyrexia [Recovering/Resolving]
  - Streptococcal infection [Unknown]
  - Symptom recurrence [Unknown]
  - Temperature intolerance [Unknown]
  - Therapeutic response decreased [Unknown]
  - Urticaria [Not Recovered/Not Resolved]
  - Urticaria pressure [Unknown]
  - Urticaria thermal [Unknown]
  - Vomiting [Recovering/Resolving]
  - Brain oedema [Unknown]
  - Dyspnoea [Unknown]
  - Joint swelling [Unknown]
  - Illness [Unknown]
  - Swelling [Unknown]
  - Cardiac disorder [Unknown]
  - Weight increased [Unknown]
  - Incorrect dose administered [Unknown]
  - Drug ineffective [Unknown]
  - Product prescribing error [Unknown]
  - Product use in unapproved indication [Unknown]
  - Cardiomegaly [Unknown]
  - Wrong technique in product usage process [Unknown]
  - Product dose omission issue [Unknown]
  - Kidney enlargement [Unknown]
  - Renal disorder [Unknown]
  - Gastritis [Unknown]
  - Arthropod bite [Not Recovered/Not Resolved]
  - Asthenia [Unknown]
